FAERS Safety Report 10368457 (Version 2)
Quarter: 2014Q4

REPORT INFORMATION
  Report Type: Spontaneous
  Country: IT (occurrence: IT)
  Receive Date: 20140807
  Receipt Date: 20141124
  Transmission Date: 20150528
  Serious: Yes (Hospitalization)
  Sender: FDA-Public Use
  Company Number: IT-BRISTOL-MYERS SQUIBB COMPANY-21263512

PATIENT
  Age: 78 Year
  Sex: Male

DRUGS (4)
  1. LASIX [Concomitant]
     Active Substance: FUROSEMIDE
  2. DOMPERIDONE [Concomitant]
     Active Substance: DOMPERIDONE
  3. LIBRADIN [Concomitant]
     Active Substance: BARNIDIPINE HYDROCHLORIDE
  4. COUMADIN [Suspect]
     Active Substance: WARFARIN SODIUM
     Indication: ATRIAL FIBRILLATION
     Dosage: DRUH INTRPTD :16JUL14
     Route: 048
     Dates: start: 20081201

REACTIONS (3)
  - Subcutaneous haematoma [Recovered/Resolved]
  - Oedema peripheral [Recovered/Resolved]
  - International normalised ratio increased [Recovered/Resolved]

NARRATIVE: CASE EVENT DATE: 20140717
